FAERS Safety Report 23243104 (Version 12)
Quarter: 2024Q1

REPORT INFORMATION
  Report Type: Spontaneous
  Country: CA (occurrence: CA)
  Receive Date: 20231130
  Receipt Date: 20240221
  Transmission Date: 20240410
  Serious: Yes (Hospitalization, Other)
  Sender: FDA-Public Use
  Company Number: CA-CELLTRION INC.-2023CA022913

PATIENT

DRUGS (3)
  1. INFLECTRA [Suspect]
     Active Substance: INFLIXIMAB-DYYB
     Indication: Crohn^s disease
     Dosage: 10 MG/KG, EVERY 7 WEEKS (ROUND UP)
     Route: 042
     Dates: start: 20230316
  2. INFLECTRA [Suspect]
     Active Substance: INFLIXIMAB-DYYB
     Dosage: 10 MG/KG, EVERY 7 WEEKS
     Route: 042
     Dates: start: 20231003
  3. INFLECTRA [Suspect]
     Active Substance: INFLIXIMAB-DYYB
     Dosage: 10 MG/KG, (630MG) AFTER 9 WEEKS AND 1 DAY (PRESCRIBED WAS EVERY 7 WEEK) ROUND UP
     Route: 042
     Dates: start: 20231206

REACTIONS (33)
  - Pneumonia [Not Recovered/Not Resolved]
  - Vomiting [Not Recovered/Not Resolved]
  - Head injury [Unknown]
  - Concussion [Not Recovered/Not Resolved]
  - Meningitis viral [Unknown]
  - Meningitis listeria [Recovering/Resolving]
  - Pyrexia [Recovered/Resolved]
  - Headache [Recovering/Resolving]
  - Asthenia [Unknown]
  - Dehydration [Unknown]
  - Circadian rhythm sleep disorder [Unknown]
  - Pyrexia [Not Recovered/Not Resolved]
  - Vomiting [Not Recovered/Not Resolved]
  - Cellulitis [Recovered/Resolved]
  - Sputum discoloured [Unknown]
  - Secretion discharge [Unknown]
  - Pulmonary pain [Unknown]
  - Cough [Unknown]
  - Productive cough [Unknown]
  - Migraine [Unknown]
  - Back pain [Unknown]
  - Sinusitis [Recovering/Resolving]
  - Monoplegia [Not Recovered/Not Resolved]
  - Condition aggravated [Unknown]
  - Cellulitis [Unknown]
  - Influenza [Unknown]
  - Influenza like illness [Unknown]
  - Nasopharyngitis [Unknown]
  - Infection [Unknown]
  - Sleep disorder [Unknown]
  - Eating disorder [Unknown]
  - Abdominal pain upper [Not Recovered/Not Resolved]
  - Constipation [Not Recovered/Not Resolved]

NARRATIVE: CASE EVENT DATE: 20230101
